FAERS Safety Report 14683559 (Version 1)
Quarter: 2018Q1

REPORT INFORMATION
  Report Type: Spontaneous
  Country: FR (occurrence: FR)
  Receive Date: 20180327
  Receipt Date: 20180327
  Transmission Date: 20180509
  Serious: Yes (Other)
  Sender: FDA-Public Use
  Company Number: FR-MERCK KGAA-2044590

PATIENT
  Sex: Female

DRUGS (2)
  1. NOVOTHYROX [Suspect]
     Active Substance: LEVOTHYROXINE SODIUM
     Indication: PRODUCT USED FOR UNKNOWN INDICATION
  2. NOVOTHYROX [Suspect]
     Active Substance: LEVOTHYROXINE SODIUM

REACTIONS (13)
  - Hypothyroidism [None]
  - Asthenia [None]
  - General physical health deterioration [None]
  - Feeling cold [None]
  - Hyperthyroidism [None]
  - Ill-defined disorder [None]
  - Abdominal pain [None]
  - Dyspepsia [None]
  - Alopecia [None]
  - Energy increased [None]
  - Skin odour abnormal [None]
  - Loss of personal independence in daily activities [None]
  - Abdominal pain upper [None]
